FAERS Safety Report 4747564-6 (Version None)
Quarter: 2005Q3

REPORT INFORMATION
  Report Type: 
  Country: None (occurrence: None)
  Receive Date: 20050818
  Receipt Date: 20040827
  Transmission Date: 20060218
  Serious: No
  Sender: FDA-Public Use
  Company Number: US-BRISTOL-MYERS SQUIBB COMPANY-12685517

PATIENT
  Age: 60 Year
  Sex: Female
  Weight: 87 kg

DRUGS (3)
  1. TEQUIN [Suspect]
     Indication: PHARYNGOLARYNGEAL PAIN
     Route: 048
     Dates: start: 20040826, end: 20040826
  2. ZESTORETIC [Concomitant]
  3. TOPROL-XL [Concomitant]

REACTIONS (2)
  - PRURITUS [None]
  - SWELLING [None]
